FAERS Safety Report 8943858 (Version 2)
Quarter: 2012Q4

REPORT INFORMATION
  Report Type: Report from Study
  Country: US (occurrence: US)
  Receive Date: 20121204
  Receipt Date: 20121212
  Transmission Date: 20130627
  Serious: Yes (Hospitalization)
  Sender: FDA-Public Use
  Company Number: US-TEVA-373843USA

PATIENT
  Age: 48 Year
  Sex: Male

DRUGS (13)
  1. TREANDA [Suspect]
     Indication: MANTLE CELL LYMPHOMA
     Dosage: on day 1 and 2 of every cycle for cycle 1 to 6
     Route: 042
     Dates: start: 20120329
  2. TREANDA [Suspect]
     Route: 042
     Dates: start: 20120301
  3. RITUXIMAB [Suspect]
     Indication: MANTLE CELL LYMPHOMA
     Dosage: day 1 of every cycle for cycle 1 to 6
     Route: 042
     Dates: start: 20120301
  4. RITUXIMAB [Suspect]
     Route: 042
     Dates: start: 20120301
  5. IBRUTINIB [Suspect]
     Dosage: on day 1-28 on a 28 day cycle
     Route: 048
     Dates: start: 20120301, end: 20120406
  6. IBRUTINIB [Suspect]
     Dosage: per protocol
     Route: 048
     Dates: start: 20120410
  7. ALLOPURINOL [Concomitant]
     Route: 048
  8. PRILOSEC [Concomitant]
  9. TOBRADEX [Concomitant]
     Route: 061
  10. TUMS [Concomitant]
     Route: 048
  11. ATIVAN [Concomitant]
     Dosage: 4 Milligram Daily;
     Route: 048
  12. CENTRUM [Concomitant]
     Dosage: 1 Dosage forms Daily;
     Route: 048
  13. XANAX [Concomitant]
     Route: 048

REACTIONS (1)
  - Pancreatitis [Recovering/Resolving]
